FAERS Safety Report 24671270 (Version 2)
Quarter: 2024Q4

REPORT INFORMATION
  Report Type: Spontaneous
  Country: JP (occurrence: JP)
  Receive Date: 20241127
  Receipt Date: 20241219
  Transmission Date: 20250114
  Serious: Yes (Hospitalization, Other)
  Sender: LUNDBECK
  Company Number: JP-SA-2024SA342075

PATIENT

DRUGS (31)
  1. SABRIL [Suspect]
     Active Substance: VIGABATRIN
     Indication: Infantile spasms
     Dosage: UNK
     Route: 048
  2. SABRIL [Suspect]
     Active Substance: VIGABATRIN
     Dosage: 600 MG/DAY
     Route: 048
     Dates: start: 20220711, end: 20220821
  3. SABRIL [Suspect]
     Active Substance: VIGABATRIN
     Dosage: 400 MG/DAY
     Route: 048
     Dates: start: 20220822, end: 20220824
  4. SABRIL [Suspect]
     Active Substance: VIGABATRIN
     Dosage: REDUCED
     Route: 048
     Dates: end: 20220824
  5. SABRIL [Suspect]
     Active Substance: VIGABATRIN
     Dosage: 800 MG/DAY
     Route: 048
     Dates: start: 20220415, end: 20220629
  6. SABRIL [Suspect]
     Active Substance: VIGABATRIN
     Dosage: 400 MG/DAY
     Route: 048
     Dates: start: 20220322, end: 20220324
  7. SABRIL [Suspect]
     Active Substance: VIGABATRIN
     Dosage: 600 MG/DAY
     Route: 048
     Dates: start: 20220325, end: 20220327
  8. SABRIL [Suspect]
     Active Substance: VIGABATRIN
     Dosage: 800 MG/DAY
     Route: 048
     Dates: start: 20220328, end: 20220330
  9. SABRIL [Suspect]
     Active Substance: VIGABATRIN
     Dosage: 1000 MG/DAY
     Route: 048
     Dates: start: 20220331, end: 20220403
  10. SABRIL [Suspect]
     Active Substance: VIGABATRIN
     Dosage: 1200 MG/DAY
     Route: 048
     Dates: start: 20220404, end: 20220410
  11. SABRIL [Suspect]
     Active Substance: VIGABATRIN
     Dosage: 1000 MG/DAY
     Route: 048
     Dates: start: 20220411, end: 20220414
  12. SABRIL [Suspect]
     Active Substance: VIGABATRIN
     Dosage: 700 MG/DAY
     Route: 048
     Dates: start: 20220630, end: 20220710
  13. LEVETIRACETAM [Concomitant]
     Active Substance: LEVETIRACETAM
     Indication: Product used for unknown indication
     Dosage: 90 MG
     Dates: start: 20220525, end: 20220603
  14. LEVETIRACETAM [Concomitant]
     Active Substance: LEVETIRACETAM
     Dosage: 180 MG
     Dates: start: 20220604, end: 20220613
  15. LEVETIRACETAM [Concomitant]
     Active Substance: LEVETIRACETAM
     Dosage: 270 MG
     Dates: start: 20220614, end: 20220724
  16. LEVETIRACETAM [Concomitant]
     Active Substance: LEVETIRACETAM
     Dosage: 350 MG
     Dates: start: 20220725
  17. LEVOCARNITINE HYDROCHLORIDE [Concomitant]
     Active Substance: LEVOCARNITINE HYDROCHLORIDE
     Indication: Product used for unknown indication
     Dosage: 100 MG
     Dates: start: 20220421
  18. VITAMIN B6 [Concomitant]
     Active Substance: PYRIDOXINE HYDROCHLORIDE
     Indication: Product used for unknown indication
     Dosage: 90 MG
     Dates: start: 20220409, end: 20220412
  19. VITAMIN B6 [Concomitant]
     Active Substance: PYRIDOXINE HYDROCHLORIDE
     Dosage: 180 MG
     Dates: start: 20220413, end: 20220416
  20. VITAMIN B6 [Concomitant]
     Active Substance: PYRIDOXINE HYDROCHLORIDE
     Dosage: 270 MG
     Dates: start: 20220417
  21. VALPROATE SODIUM [Concomitant]
     Active Substance: VALPROATE SODIUM
     Indication: Product used for unknown indication
     Dosage: 90 MG
     Dates: start: 20220409, end: 20220414
  22. VALPROATE SODIUM [Concomitant]
     Active Substance: VALPROATE SODIUM
     Dosage: 500 MG
     Dates: start: 20220810
  23. VALPROATE SODIUM [Concomitant]
     Active Substance: VALPROATE SODIUM
     Dosage: 150 MG
     Dates: start: 20220415, end: 20220419
  24. VALPROATE SODIUM [Concomitant]
     Active Substance: VALPROATE SODIUM
     Dosage: 200 MG
     Dates: start: 20220420, end: 20220425
  25. VALPROATE SODIUM [Concomitant]
     Active Substance: VALPROATE SODIUM
     Dosage: 250 MG
     Dates: start: 20220426, end: 20220501
  26. VALPROATE SODIUM [Concomitant]
     Active Substance: VALPROATE SODIUM
     Dosage: 300 MG
     Dates: start: 20220502, end: 20220508
  27. VALPROATE SODIUM [Concomitant]
     Active Substance: VALPROATE SODIUM
     Dosage: 400 MG
     Dates: start: 20220509, end: 20220629
  28. VALPROATE SODIUM [Concomitant]
     Active Substance: VALPROATE SODIUM
     Dosage: 380 MG
     Dates: start: 20220630, end: 20220710
  29. VALPROATE SODIUM [Concomitant]
     Active Substance: VALPROATE SODIUM
     Dosage: 400 MG
     Dates: start: 20220711, end: 20220727
  30. VALPROATE SODIUM [Concomitant]
     Active Substance: VALPROATE SODIUM
     Dosage: 450 MG
     Dates: start: 20220728, end: 20220809
  31. TOPIRAMATE [Concomitant]
     Active Substance: TOPIRAMATE
     Indication: Product used for unknown indication
     Dosage: 120 MG
     Dates: start: 20220322

REACTIONS (2)
  - Toxic encephalopathy [Recovered/Resolved]
  - Hypotonia [Recovered/Resolved]

NARRATIVE: CASE EVENT DATE: 20220616
